FAERS Safety Report 5780844-4 (Version None)
Quarter: 2008Q2

REPORT INFORMATION
  Report Type: 
  Country: None (occurrence: None)
  Receive Date: 20080620
  Receipt Date: 20080611
  Transmission Date: 20081010
  Serious: Yes (Hospitalization, Other)
  Sender: FDA-Public Use
  Company Number: US-PFIZER INC-2007090462

PATIENT
  Sex: Male
  Weight: 111.36 kg

DRUGS (13)
  1. LIPITOR [Suspect]
     Indication: MYOCARDIAL INFARCTION
     Route: 048
  2. LIPITOR [Suspect]
     Indication: CORONARY ARTERY BYPASS
  3. LIPITOR [Suspect]
     Indication: CARDIOVASCULAR DISORDER
  4. LASIX [Concomitant]
     Route: 048
  5. COZAAR [Concomitant]
     Route: 048
  6. NORVASC [Concomitant]
     Route: 048
  7. LYRICA [Concomitant]
     Route: 048
  8. HYTRIN [Concomitant]
     Route: 048
  9. TRAMADOL HCL [Concomitant]
     Route: 048
  10. ASPIRIN [Concomitant]
  11. ATENOLOL [Concomitant]
  12. IRON SULFATETHIAMIN COMPOUND TAB [Concomitant]
  13. POTASSIUM CHLORIDE [Concomitant]

REACTIONS (5)
  - ANAEMIA [None]
  - ARTHRALGIA [None]
  - GASTROINTESTINAL ANGIODYSPLASIA HAEMORRHAGIC [None]
  - NEUROPATHY PERIPHERAL [None]
  - OEDEMA [None]
